FAERS Safety Report 23671189 (Version 1)
Quarter: 2024Q1

REPORT INFORMATION
  Report Type: Spontaneous
  Country: JP (occurrence: JP)
  Receive Date: 20240326
  Receipt Date: 20240326
  Transmission Date: 20240410
  Serious: Yes (Other)
  Sender: FDA-Public Use
  Company Number: JP-ENDO PHARMACEUTICALS INC-2024-001350

PATIENT
  Age: 8 Decade
  Sex: Male

DRUGS (4)
  1. MICAFUNGIN [Suspect]
     Active Substance: MICAFUNGIN SODIUM
     Indication: Anti-infective therapy
     Dosage: 50 MILLIGRAM, UNKNOWN
     Route: 042
  2. PREDNISOLONE [Concomitant]
     Active Substance: PREDNISOLONE
     Indication: Acute megakaryocytic leukaemia
     Dosage: UNK UNKNOWN, UNKNOWN
     Route: 065
  3. IDARUBICIN [Concomitant]
     Active Substance: IDARUBICIN
     Indication: Acute megakaryocytic leukaemia
     Dosage: 12 MILLIGRAM/SQ. METER, UNKNOWN
     Route: 065
  4. CYTARABINE [Concomitant]
     Active Substance: CYTARABINE
     Indication: Acute megakaryocytic leukaemia
     Dosage: 100 MILLIGRAM/SQ. METER, UNKNOWN
     Route: 065

REACTIONS (2)
  - Disseminated trichosporonosis [Recovered/Resolved]
  - Drug ineffective [Unknown]
